FAERS Safety Report 7691543-6 (Version None)
Quarter: 2011Q3

REPORT INFORMATION
  Report Type: 
  Country: None (occurrence: None)
  Receive Date: 20110818
  Receipt Date: 20110808
  Transmission Date: 20111222
  Serious: Yes (Other)
  Sender: FDA-Public Use
  Company Number: PHHY2011JP72374

PATIENT
  Sex: Male

DRUGS (1)
  1. TEGRETOL [Suspect]
     Dosage: UNK UG/ML, UNK
     Route: 048
     Dates: start: 20110509, end: 20110725

REACTIONS (14)
  - OTORRHOEA [None]
  - STOMATITIS [None]
  - SLEEP DISORDER [None]
  - RASH GENERALISED [None]
  - SCRATCH [None]
  - LIP SWELLING [None]
  - NAIL DISORDER [None]
  - CHAPPED LIPS [None]
  - MALAISE [None]
  - PRURITUS [None]
  - LIP PAIN [None]
  - ORAL PAIN [None]
  - FOREIGN BODY [None]
  - C-REACTIVE PROTEIN INCREASED [None]
